FAERS Safety Report 19300192 (Version 2)
Quarter: 2022Q3

REPORT INFORMATION
  Report Type: Other
  Country: US (occurrence: None)
  Receive Date: 20210525
  Receipt Date: 20220829
  Transmission Date: 20221027
  Serious: Yes (Hospitalization)
  Sender: FDA-Public Use
  Company Number: US-ROCHE-2176578

PATIENT
  Age: 30 Year
  Sex: Male

DRUGS (9)
  1. RITUXAN [Suspect]
     Active Substance: RITUXIMAB
     Indication: Dermatomyositis
     Dosage: DAY 1 AND DAY 15, THEN 6 MONTHS?DATE OF TREATMENT: 16/JUL/2018, 28/JUL/2021, 02/FEB/2022
     Route: 042
     Dates: start: 20180702
  2. RITUXAN [Suspect]
     Active Substance: RITUXIMAB
     Indication: Myopathy
     Dosage: DAY 1 AND DAY 15 AS PER PROTOCOL
     Route: 042
     Dates: start: 20210728
  3. RITUXAN [Suspect]
     Active Substance: RITUXIMAB
     Indication: Pericarditis
     Dosage: DAY 1, DAY 15 AS PER PROTOCOL
     Route: 042
     Dates: start: 20220202
  4. RITUXAN [Suspect]
     Active Substance: RITUXIMAB
     Indication: Systemic lupus erythematosus
  5. RASUVO [Concomitant]
     Active Substance: METHOTREXATE SODIUM
  6. FOLIC ACID [Concomitant]
     Active Substance: FOLIC ACID
  7. HYDROXYCHLOROQUINE [Concomitant]
     Active Substance: HYDROXYCHLOROQUINE
  8. PREDNISONE [Concomitant]
     Active Substance: PREDNISONE
  9. BENADRYL [Concomitant]
     Active Substance: DIPHENHYDRAMINE HYDROCHLORIDE

REACTIONS (2)
  - Influenza [Recovered/Resolved]
  - Off label use [Unknown]

NARRATIVE: CASE EVENT DATE: 20200116
